FAERS Safety Report 18674943 (Version 1)
Quarter: 2020Q4

REPORT INFORMATION
  Report Type: Spontaneous
  Country: US (occurrence: US)
  Receive Date: 20201228
  Receipt Date: 20201228
  Transmission Date: 20210114
  Serious: Yes (Hospitalization)
  Sender: FDA-Public Use
  Company Number: None

PATIENT
  Age: 70 Year
  Sex: Male

DRUGS (11)
  1. BISOPROL FUM [Concomitant]
     Active Substance: BISOPROLOL FUMARATE
  2. PRAVASTATIN. [Concomitant]
     Active Substance: PRAVASTATIN
  3. ELIQUIS [Concomitant]
     Active Substance: APIXABAN
  4. MEXILETINE [Concomitant]
     Active Substance: MEXILETINE
  5. ENALAPRIL [Concomitant]
     Active Substance: ENALAPRIL
  6. DULOXETINE. [Concomitant]
     Active Substance: DULOXETINE
  7. SOTALOL HCL [Concomitant]
     Active Substance: SOTALOL
  8. TAMSULOSIN [Concomitant]
     Active Substance: TAMSULOSIN
  9. REPATHA [Suspect]
     Active Substance: EVOLOCUMAB
     Indication: CHRONIC LEFT VENTRICULAR FAILURE
     Dosage: ?          OTHER FREQUENCY:EVERY 2 WEEKS;?
     Route: 058
     Dates: start: 20180118
  10. REPATHA [Suspect]
     Active Substance: EVOLOCUMAB
     Indication: CARDIAC FAILURE CONGESTIVE
     Dosage: ?          OTHER FREQUENCY:EVERY 2 WEEKS;?
     Route: 058
     Dates: start: 20180118
  11. CLONAZEPAM. [Concomitant]
     Active Substance: CLONAZEPAM

REACTIONS (1)
  - Cardiac disorder [None]

NARRATIVE: CASE EVENT DATE: 20201224
